FAERS Safety Report 6354648-8 (Version None)
Quarter: 2009Q3

REPORT INFORMATION
  Report Type: 
  Country: None (occurrence: None)
  Receive Date: 20090914
  Receipt Date: 20090909
  Transmission Date: 20100115
  Serious: Yes (Disabling)
  Sender: FDA-Public Use
  Company Number: DE-AVENTIS-200912205DE

PATIENT
  Age: 66 Year
  Sex: Female

DRUGS (8)
  1. ARAVA [Suspect]
     Indication: DRUG USE FOR UNKNOWN INDICATION
     Route: 048
     Dates: start: 20090401
  2. MTX                                /00113801/ [Concomitant]
     Indication: DRUG USE FOR UNKNOWN INDICATION
     Dosage: DOSE: NOT REPORTED
  3. JODTHYROX [Concomitant]
     Route: 048
  4. TRIAZID [Concomitant]
     Indication: HYPERTENSION
     Route: 048
  5. METOPROLOL TARTRATE [Concomitant]
     Indication: HYPERTENSION
     Route: 048
  6. INEGY [Concomitant]
     Route: 048
  7. MARCUMAR [Concomitant]
     Indication: ATRIAL FIBRILLATION
     Dosage: DOSE: NOT REPORTED
  8. PREDNISOLONE [Concomitant]
     Indication: POLYARTHRITIS
     Route: 048

REACTIONS (1)
  - HYPERTRICHOSIS [None]
